FAERS Safety Report 14518934 (Version 1)
Quarter: 2018Q1

REPORT INFORMATION
  Report Type: Spontaneous
  Country: US (occurrence: US)
  Receive Date: 20180209
  Receipt Date: 20180209
  Transmission Date: 20180509
  Serious: No
  Sender: FDA-Public Use
  Company Number: None

PATIENT
  Age: 8 Year
  Sex: Male
  Weight: 24.3 kg

DRUGS (1)
  1. QUILLIVANT XR [Suspect]
     Active Substance: METHYLPHENIDATE HYDROCHLORIDE
     Indication: ATTENTION DEFICIT/HYPERACTIVITY DISORDER
     Dosage: ?          QUANTITY:8 ML;?
     Route: 048
     Dates: start: 20161001, end: 20180126

REACTIONS (4)
  - Dysgeusia [None]
  - Product quality issue [None]
  - Hypophagia [None]
  - Decreased appetite [None]

NARRATIVE: CASE EVENT DATE: 20180101
